FAERS Safety Report 7093826-X (Version None)
Quarter: 2010Q4

REPORT INFORMATION
  Report Type: 
  Country: None (occurrence: None)
  Receive Date: 20101110
  Receipt Date: 20101104
  Transmission Date: 20110411
  Serious: Yes (Hospitalization)
  Sender: FDA-Public Use
  Company Number: A0788258A

PATIENT
  Age: 61 Year
  Sex: Male
  Weight: 87.3 kg

DRUGS (12)
  1. AVANDIA [Suspect]
     Indication: DIABETES MELLITUS
     Route: 048
     Dates: start: 20030101, end: 20070523
  2. AVANDAMET [Suspect]
     Indication: TYPE 2 DIABETES MELLITUS
     Route: 048
     Dates: start: 20030909, end: 20050701
  3. ACCUPRIL [Concomitant]
  4. LIPITOR [Concomitant]
  5. THEOPHYLLINE [Concomitant]
  6. DUONEB [Concomitant]
  7. PREVACID [Concomitant]
  8. ZOLOFT [Concomitant]
  9. ADVAIR DISKUS 100/50 [Concomitant]
  10. PREDNISONE [Concomitant]
  11. SPIRIVA [Concomitant]
  12. TRIAMTERENE [Concomitant]

REACTIONS (19)
  - AORTIC VALVE SCLEROSIS [None]
  - BLOOD GLUCOSE INCREASED [None]
  - CANDIDIASIS [None]
  - CARDIOMYOPATHY [None]
  - CHRONIC OBSTRUCTIVE PULMONARY DISEASE [None]
  - CORONARY ARTERY DISEASE [None]
  - CORONARY ARTERY STENOSIS [None]
  - DIASTOLIC DYSFUNCTION [None]
  - EMOTIONAL DISORDER [None]
  - HYPERTENSION [None]
  - LEFT VENTRICULAR HYPERTROPHY [None]
  - MITRAL VALVE INCOMPETENCE [None]
  - MULTIPLE INJURIES [None]
  - MYOCARDIAL INFARCTION [None]
  - RENAL FAILURE ACUTE [None]
  - RESTLESS LEGS SYNDROME [None]
  - SYNCOPE [None]
  - TRANSIENT ISCHAEMIC ATTACK [None]
  - VENTRICULAR TACHYCARDIA [None]
